FAERS Safety Report 4344684-5 (Version None)
Quarter: 2004Q2

REPORT INFORMATION
  Report Type: 
  Country: None (occurrence: None)
  Receive Date: 20040419
  Receipt Date: 20040405
  Transmission Date: 20050107
  Serious: Yes (Hospitalization)
  Sender: FDA-Public Use
  Company Number: 2004022850

PATIENT
  Age: 51 Year
  Sex: Female

DRUGS (2)
  1. RELPAX [Suspect]
     Indication: ILL-DEFINED DISORDER
     Dosage: 80 MG, DAILY, ORAL
     Route: 048
     Dates: start: 20040216
  2. PREDNISONE [Suspect]
     Indication: ILL-DEFINED DISORDER
     Dosage: 15 MG, DAILY, ORAL
     Route: 048

REACTIONS (8)
  - HEADACHE [None]
  - INTRACRANIAL PRESSURE INCREASED [None]
  - NAUSEA [None]
  - PHONOPHOBIA [None]
  - PHOTOPHOBIA [None]
  - PYREXIA [None]
  - SELF-MEDICATION [None]
  - VOMITING [None]
